FAERS Safety Report 4581994-0 (Version None)
Quarter: 2005Q1

REPORT INFORMATION
  Report Type: 
  Country: None (occurrence: None)
  Receive Date: 20050119
  Receipt Date: 20041007
  Transmission Date: 20050727
  Serious: Yes (Hospitalization)
  Sender: FDA-Public Use
  Company Number: US-JNJFOC-20040907127

PATIENT
  Age: 53 Year
  Sex: Female
  Weight: 73.3 kg

DRUGS (11)
  1. DOXIL (DOXORUBICIN HYDROCHLORIDE) LIPOSOME INJECTION [Suspect]
     Indication: OVARIAN CANCER
     Dosage: 94 MG, 1 IN 4 WEEK, INTRAVENOUS
     Route: 042
     Dates: start: 20040721, end: 20040721
  2. DOXIL (DOXORUBICIN HYDROCHLORIDE) LIPOSOME INJECTION [Suspect]
     Dosage: 92 MG, 1 IN 4 WEEK, INTRAVENOUS
     Route: 042
     Dates: start: 20040820
  3. TLK286 (ANTINEOPLASTIC AGENTS) [Suspect]
     Indication: OVARIAN CANCER
     Dosage: 1795 MG, 1 IN 4 WEEK, INTRAVENOUS
     Route: 042
     Dates: start: 20040721, end: 20040721
  4. TLK286 (ANTINEOPLASTIC AGENTS) [Suspect]
     Dosage: 1405 MG, 1 IN 4 WEEK, INTRAVENOUS
     Route: 042
     Dates: start: 20040820
  5. DEXAMETHASONE [Concomitant]
  6. BENADRYL [Concomitant]
  7. ONDANSETRON HCL [Concomitant]
  8. ATIVAN [Concomitant]
  9. PREVACID [Concomitant]
  10. COMPAZINE [Concomitant]
  11. NEUPOGEN (PILGRASTIM) [Concomitant]

REACTIONS (1)
  - FEBRILE NEUTROPENIA [None]
